FAERS Safety Report 11181216 (Version 2)
Quarter: 2015Q2

REPORT INFORMATION
  Report Type: Spontaneous
  Country: US (occurrence: US)
  Receive Date: 20150611
  Receipt Date: 20150619
  Transmission Date: 20150821
  Serious: Yes (Hospitalization)
  Sender: FDA-Public Use
  Company Number: US-UNITED THERAPEUTICS LTD. - LX-UK-UTC-042520

PATIENT
  Age: 62 Year
  Sex: Female
  Weight: 76.8 kg

DRUGS (21)
  1. TYVASO [Suspect]
     Active Substance: TREPROSTINIL
     Indication: PULMONARY ARTERIAL HYPERTENSION
     Dosage: 18-54 MCG
     Dates: start: 20131028
  2. FLOLAN [Suspect]
     Active Substance: EPOPROSTENOL SODIUM
     Dosage: 0.04 ?G/KG, CONTINUING
     Route: 041
     Dates: start: 20100206
  3. FLOLAN [Suspect]
     Active Substance: EPOPROSTENOL SODIUM
     Dosage: 0.00224 NG/KG, CONTINUING
     Route: 041
  4. OXYGEN. [Concomitant]
     Active Substance: OXYGEN
     Indication: PRODUCT USED FOR UNKNOWN INDICATION
  5. FLOLAN [Suspect]
     Active Substance: EPOPROSTENOL SODIUM
     Dosage: 0.01 ?G/KG, CONTINUING
     Route: 041
     Dates: start: 20100206
  6. FLOLAN [Suspect]
     Active Substance: EPOPROSTENOL SODIUM
     Dosage: 0.01 ?G/KG, CONTINUING
     Route: 041
     Dates: start: 20100206
  7. FLOLAN [Suspect]
     Active Substance: EPOPROSTENOL SODIUM
     Dosage: 0.0224 ?G/KG, CONTINUING
     Route: 041
  8. FLOLAN [Suspect]
     Active Substance: EPOPROSTENOL SODIUM
     Dosage: 0.01 ?G/KG, CONTINUING
     Route: 041
     Dates: start: 20100206
  9. FLOLAN [Suspect]
     Active Substance: EPOPROSTENOL SODIUM
     Dosage: 0.0104 ?G/KG, CONTINUING
     Route: 041
  10. GABAPENTIN. [Concomitant]
     Active Substance: GABAPENTIN
     Indication: PAIN
  11. FLOLAN [Suspect]
     Active Substance: EPOPROSTENOL SODIUM
     Indication: PULMONARY ARTERIAL HYPERTENSION
     Dosage: 0.030 ?G/KG, CONTINUING
     Route: 042
     Dates: start: 20100205
  12. FLOLAN [Suspect]
     Active Substance: EPOPROSTENOL SODIUM
     Dosage: 0.01 ?G/KG, CONTINUING
     Route: 041
     Dates: start: 20100206
  13. FLOLAN [Suspect]
     Active Substance: EPOPROSTENOL SODIUM
     Dosage: 0.01 ?G/KG, CONTINUING
     Route: 041
     Dates: start: 20100206
  14. FLOLAN [Suspect]
     Active Substance: EPOPROSTENOL SODIUM
     Dosage: 0.01 ?G/KG, CONTINUING
     Route: 041
     Dates: start: 20100206
  15. FLOLAN [Suspect]
     Active Substance: EPOPROSTENOL SODIUM
     Dosage: 0.01 ?G/KG, CONTINUING
     Route: 041
     Dates: start: 20100206
  16. FLOLAN [Suspect]
     Active Substance: EPOPROSTENOL SODIUM
     Dosage: 0.0184 ?G/KG, CONTINUING
     Route: 041
  17. TRACLEER [Concomitant]
     Active Substance: BOSENTAN\BOSENTAN MONOHYDRATE
     Indication: PRODUCT USED FOR UNKNOWN INDICATION
  18. FLOLAN [Suspect]
     Active Substance: EPOPROSTENOL SODIUM
     Dosage: 0.01 ?G/KG, CONTINUING
     Route: 041
     Dates: start: 20100206
  19. FLOLAN [Suspect]
     Active Substance: EPOPROSTENOL SODIUM
     Dosage: 0.0224 ?G/KG, CONTINUING
     Route: 041
  20. FLOLAN [Suspect]
     Active Substance: EPOPROSTENOL SODIUM
     Dosage: 0.012 ?G/KG, CONTINUING
     Route: 041
  21. ADCIRCA [Suspect]
     Active Substance: TADALAFIL
     Indication: PRODUCT USED FOR UNKNOWN INDICATION

REACTIONS (31)
  - Cardiac failure [Unknown]
  - Dyspnoea [Unknown]
  - Headache [Unknown]
  - Arthralgia [Unknown]
  - Device malfunction [Unknown]
  - Mechanical ventilation [Not Recovered/Not Resolved]
  - Oedema peripheral [Not Recovered/Not Resolved]
  - Flushing [Not Recovered/Not Resolved]
  - Cough [Unknown]
  - Respiratory tract congestion [Unknown]
  - Injection site discomfort [Recovered/Resolved]
  - Oxygen saturation decreased [Unknown]
  - Hypotension [Unknown]
  - Throat irritation [Unknown]
  - Chest pain [Unknown]
  - Device dislocation [Unknown]
  - Pneumonia [Unknown]
  - Pain in jaw [Not Recovered/Not Resolved]
  - Device leakage [Recovered/Resolved]
  - Painful respiration [Unknown]
  - Fatigue [Not Recovered/Not Resolved]
  - Localised oedema [Unknown]
  - Fluid retention [Unknown]
  - Pain in extremity [Not Recovered/Not Resolved]
  - Sensation of foreign body [Recovered/Resolved]
  - Dizziness [Unknown]
  - Confusional state [Unknown]
  - Oedema [Not Recovered/Not Resolved]
  - Pain [Not Recovered/Not Resolved]
  - Anxiety [Unknown]
  - Chest discomfort [Unknown]

NARRATIVE: CASE EVENT DATE: 2013
